FAERS Safety Report 6341650-5 (Version None)
Quarter: 2009Q3

REPORT INFORMATION
  Report Type: 
  Country: None (occurrence: None)
  Receive Date: 20090904
  Receipt Date: 20090827
  Transmission Date: 20100115
  Serious: Yes (Hospitalization, Other)
  Sender: FDA-Public Use
  Company Number: CA-GILEAD-2009-0023912

PATIENT
  Sex: Male
  Weight: 48.4 kg

DRUGS (6)
  1. VIREAD [Suspect]
     Indication: HIV INFECTION
     Route: 048
     Dates: start: 20020301, end: 20090201
  2. KALETRA [Concomitant]
     Indication: HIV INFECTION
     Dates: start: 20020301, end: 20090201
  3. ABACAVIR [Concomitant]
     Indication: HIV INFECTION
     Dates: start: 20020301, end: 20090201
  4. NEVIRAPINE [Concomitant]
     Indication: HIV INFECTION
     Dates: start: 20020301, end: 20090201
  5. DOXYCYCLINE [Concomitant]
     Dates: start: 20090301
  6. ASPIRIN [Concomitant]
     Dates: start: 20090301

REACTIONS (2)
  - RENAL FAILURE ACUTE [None]
  - RENAL TUBULAR ACIDOSIS [None]
